FAERS Safety Report 19026470 (Version 1)
Quarter: 2021Q1

REPORT INFORMATION
  Report Type: Spontaneous
  Country: US (occurrence: US)
  Receive Date: 20210318
  Receipt Date: 20210318
  Transmission Date: 20210420
  Serious: No
  Sender: FDA-Public Use
  Company Number: NVSC2021US057304

PATIENT

DRUGS (1)
  1. COSENTYX [Suspect]
     Active Substance: SECUKINUMAB
     Indication: PRODUCT USED FOR UNKNOWN INDICATION
     Route: 065

REACTIONS (8)
  - Middle insomnia [Unknown]
  - Pruritus [Unknown]
  - Product dose omission issue [Unknown]
  - Condition aggravated [Unknown]
  - Hypersensitivity [Unknown]
  - Rash [Unknown]
  - Musculoskeletal discomfort [Unknown]
  - Inflammation [Unknown]
